FAERS Safety Report 24797289 (Version 1)
Quarter: 2025Q1

REPORT INFORMATION
  Report Type: Spontaneous
  Country: US (occurrence: US)
  Receive Date: 20250102
  Receipt Date: 20250102
  Transmission Date: 20250408
  Serious: No
  Sender: STALLERGENES
  Company Number: US-AIMMUNE THERAPEUTICS, INC.-2024AIMT00856

PATIENT
  Age: 10 Year
  Sex: Female

DRUGS (6)
  1. PALFORZIA [Suspect]
     Active Substance: PEANUT
     Indication: Food allergy
     Dates: start: 20240312, end: 20240312
  2. PALFORZIA [Suspect]
     Active Substance: PEANUT
     Dosage: 120 MG, 1X/DAY
     Dates: start: 20240605
  3. PALFORZIA [Suspect]
     Active Substance: PEANUT
  4. ALBUTEROL SULFATE [Concomitant]
     Active Substance: ALBUTEROL SULFATE
     Indication: Product used for unknown indication
  5. DIETARY SUPPLEMENT\HERBALS [Concomitant]
     Active Substance: DIETARY SUPPLEMENT\HERBALS
     Indication: Product used for unknown indication
  6. ZYRTEC [Concomitant]
     Active Substance: CETIRIZINE HYDROCHLORIDE
     Indication: Product used for unknown indication

REACTIONS (1)
  - Abdominal pain [Not Recovered/Not Resolved]
